FAERS Safety Report 17107749 (Version 1)
Quarter: 2019Q4

REPORT INFORMATION
  Report Type: Spontaneous
  Country: US (occurrence: US)
  Receive Date: 20191203
  Receipt Date: 20191203
  Transmission Date: 20200122
  Serious: Yes (Other)
  Sender: FDA-Public Use
  Company Number: US-REGENERON PHARMACEUTICALS, INC.-2019-69405

PATIENT

DRUGS (2)
  1. EYLEA [Suspect]
     Active Substance: AFLIBERCEPT
     Indication: NEOVASCULAR AGE-RELATED MACULAR DEGENERATION
     Dosage: 2 MG, Q6W, IN THE LEFT EYE
     Route: 031
     Dates: start: 20160316
  2. EYLEA [Suspect]
     Active Substance: AFLIBERCEPT
     Indication: CHOROIDAL NEOVASCULARISATION
     Dosage: 2 MG, Q6W, IN THE LEFT EYE, LAST DOSE PRIOR TO EVENT
     Route: 031
     Dates: start: 20191120, end: 20191120

REACTIONS (2)
  - Endophthalmitis [Recovering/Resolving]
  - Vitrectomy [Unknown]

NARRATIVE: CASE EVENT DATE: 20191124
